FAERS Safety Report 7126228-8 (Version None)
Quarter: 2010Q4

REPORT INFORMATION
  Report Type: 
  Country: None (occurrence: None)
  Receive Date: 20101129
  Receipt Date: 20101117
  Transmission Date: 20110411
  Serious: Yes (Hospitalization, Other)
  Sender: FDA-Public Use
  Company Number: PHHY2010US66027

PATIENT
  Sex: Male
  Weight: 17 kg

DRUGS (12)
  1. EXJADE [Suspect]
     Indication: IRON OVERLOAD
     Dosage: 375 MG, QD
     Route: 048
     Dates: start: 20100401, end: 20100822
  2. EXJADE [Suspect]
     Indication: SICKLE CELL ANAEMIA
     Dosage: 375 MG, QD
     Route: 048
     Dates: start: 20100801
  3. HYDROXYUREA [Concomitant]
     Indication: SICKLE CELL ANAEMIA
     Dosage: 300 MG DAILY
     Dates: start: 20091101, end: 20100822
  4. AMOXICILLIN [Concomitant]
     Indication: PROPHYLAXIS
     Dosage: 250 MG, BID
     Dates: start: 20040101
  5. FOLIC ACID [Concomitant]
     Indication: SUPPLEMENTATION THERAPY
     Dosage: 1 MG DAILY
     Dates: start: 20050101
  6. SINGULAIR [Concomitant]
     Indication: RHINITIS ALLERGIC
     Dosage: 5 MG DAILY
     Dates: start: 20070101
  7. SINGULAIR [Concomitant]
     Indication: ASTHMA
  8. CLARITIN [Concomitant]
     Indication: RHINITIS ALLERGIC
     Dosage: 5 MG DAILY
  9. CLARITIN [Concomitant]
     Indication: ASTHMA
  10. FLOVENT [Concomitant]
     Indication: ASTHMA
     Dosage: 40 MG, BID
     Dates: start: 20091101
  11. FLONASE [Concomitant]
     Indication: RHINITIS ALLERGIC
     Dosage: DAILY
  12. ALBUTEROL [Concomitant]
     Indication: ASTHMA

REACTIONS (4)
  - HEPATOTOXICITY [None]
  - PAIN [None]
  - RENAL FUNCTION TEST ABNORMAL [None]
  - TRANSAMINASES INCREASED [None]
